FAERS Safety Report 5431846-9 (Version None)
Quarter: 2007Q3

REPORT INFORMATION
  Report Type: 
  Country: None (occurrence: None)
  Receive Date: 20070731
  Receipt Date: 20070515
  Transmission Date: 20080115
  Serious: No
  Sender: FDA-Public Use
  Company Number: US200705004192

PATIENT
  Sex: Female

DRUGS (1)
  1. BYETTA [Suspect]
     Dosage: 2/D, SUBCUTANEOUS    DAILY (1/D), SUBCUTANEOUS
     Route: 058

REACTIONS (2)
  - FEELING ABNORMAL [None]
  - WEIGHT DECREASED [None]
